FAERS Safety Report 5267316-0 (Version None)
Quarter: 2007Q1

REPORT INFORMATION
  Report Type: 
  Country: None (occurrence: None)
  Receive Date: 20070316
  Receipt Date: 20070306
  Transmission Date: 20070707
  Serious: Yes (Hospitalization, Other)
  Sender: FDA-Public Use
  Company Number: 2207A2000022

PATIENT
  Age: 3 Week
  Sex: Female
  Weight: 3 kg

DRUGS (3)
  1. ZIDOVUDINE [Suspect]
     Dosage: 12MG TWICE PER DAY
     Route: 048
     Dates: start: 20070103
  2. LAMIVUDINE [Suspect]
     Dosage: 6MG TWICE PER DAY
     Route: 048
     Dates: start: 20070103, end: 20070118
  3. NELFINAVIR [Suspect]
     Dosage: 150MG TWICE PER DAY
     Route: 048
     Dates: start: 20070103, end: 20070118

REACTIONS (5)
  - DERMATITIS DIAPER [None]
  - DIARRHOEA [None]
  - GASTROENTERITIS [None]
  - ORAL CANDIDIASIS [None]
  - PALLOR [None]
